FAERS Safety Report 6325597-6 (Version None)
Quarter: 2009Q3

REPORT INFORMATION
  Report Type: 
  Country: None (occurrence: None)
  Receive Date: 20090824
  Receipt Date: 20090724
  Transmission Date: 20100115
  Serious: No
  Sender: FDA-Public Use
  Company Number: US-ABBOTT-09P-163-0587045-00

PATIENT
  Sex: Male
  Weight: 104.42 kg

DRUGS (3)
  1. NIASPAN [Suspect]
     Indication: HIGH DENSITY LIPOPROTEIN DECREASED
     Dates: start: 20090401
  2. ZOLOFT [Concomitant]
     Indication: DRUG USE FOR UNKNOWN INDICATION
  3. ZOCOR [Concomitant]
     Indication: DRUG USE FOR UNKNOWN INDICATION

REACTIONS (1)
  - ERYTHEMA [None]
